FAERS Safety Report 6406893-0 (Version None)
Quarter: 2009Q4

REPORT INFORMATION
  Report Type: 
  Country: None (occurrence: None)
  Receive Date: 20091020
  Receipt Date: 20091012
  Transmission Date: 20100525
  Serious: Yes (Hospitalization)
  Sender: FDA-Public Use
  Company Number: FR-ROXANE LABORATORIES, INC.-2009-RO-01051RO

PATIENT
  Age: 34 Year
  Sex: Female

DRUGS (7)
  1. LITHIUM CARBONATE [Suspect]
     Route: 048
  2. LITHIUM CARBONATE [Suspect]
     Route: 048
  3. CYAMEMAZINE [Suspect]
  4. GLUCOSE SALINE SOLUTION [Concomitant]
     Indication: FLUID REPLACEMENT
     Route: 042
  5. GLUCOSE SALINE SOLUTION [Concomitant]
     Indication: DRUG TOXICITY
  6. SALINE [Concomitant]
     Indication: FLUID REPLACEMENT
     Route: 042
  7. SALINE [Concomitant]
     Indication: DRUG TOXICITY

REACTIONS (13)
  - AGITATION [None]
  - DEHYDRATION [None]
  - DIARRHOEA [None]
  - DISORIENTATION [None]
  - DRUG TOXICITY [None]
  - ENCEPHALOPATHY [None]
  - HYPERREFLEXIA [None]
  - MYDRIASIS [None]
  - MYOCLONUS [None]
  - RENAL FAILURE ACUTE [None]
  - SUICIDE ATTEMPT [None]
  - TACHYCARDIA [None]
  - VOMITING [None]
